FAERS Safety Report 23100724 (Version 1)
Quarter: 2023Q4

REPORT INFORMATION
  Report Type: Spontaneous
  Country: US (occurrence: None)
  Receive Date: 20231020
  Receipt Date: 20231020
  Transmission Date: 20240110
  Serious: Yes (Death, Hospitalization)
  Sender: FDA-Public Use
  Company Number: None

PATIENT
  Age: 75 Year
  Sex: Male

DRUGS (1)
  1. WARFARIN SODIUM [Suspect]
     Active Substance: WARFARIN SODIUM
     Dates: start: 20220619, end: 20230120

REACTIONS (4)
  - Fall [None]
  - Face injury [None]
  - Skin laceration [None]
  - Cerebral haemorrhage [None]

NARRATIVE: CASE EVENT DATE: 20230118
